FAERS Safety Report 11336961 (Version 1)
Quarter: 2015Q3

REPORT INFORMATION
  Report Type: Spontaneous
  Country: US (occurrence: US)
  Receive Date: 20150804
  Receipt Date: 20150804
  Transmission Date: 20151125
  Serious: Yes (Other)
  Sender: FDA-Public Use
  Company Number: US-TEVA-582437USA

PATIENT
  Age: 44 Year
  Sex: Female

DRUGS (1)
  1. COPAXONE [Suspect]
     Active Substance: GLATIRAMER ACETATE
     Indication: MULTIPLE SCLEROSIS
     Dates: start: 20071207

REACTIONS (4)
  - Adverse event [Unknown]
  - Chills [Unknown]
  - Asthma [Unknown]
  - Injection site reaction [Unknown]

NARRATIVE: CASE EVENT DATE: 201307
